FAERS Safety Report 6339810-2 (Version None)
Quarter: 2009Q3

REPORT INFORMATION
  Report Type: 
  Country: None (occurrence: None)
  Receive Date: 20090903
  Receipt Date: 20090826
  Transmission Date: 20100115
  Serious: Yes (Hospitalization)
  Sender: FDA-Public Use
  Company Number: PHHY2009BE36271

PATIENT
  Sex: Female

DRUGS (4)
  1. EXELON [Suspect]
     Indication: DEMENTIA ALZHEIMER'S TYPE
     Dosage: 4.6 MG, UNK
     Route: 062
     Dates: start: 20090708
  2. BEFACT FORTE [Concomitant]
     Dosage: 1 DF, QD
     Dates: start: 20090701
  3. SELOZOK [Concomitant]
     Dosage: 0.5 DF, QD
     Dates: start: 19950101
  4. TEMESTA [Concomitant]
     Dosage: 0.5 DF, QHS
     Dates: start: 19800101

REACTIONS (3)
  - ENDOSCOPY UPPER GASTROINTESTINAL TRACT [None]
  - HIATUS HERNIA [None]
  - OESOPHAGEAL FOOD IMPACTION [None]
